FAERS Safety Report 24180904 (Version 1)
Quarter: 2024Q3

REPORT INFORMATION
  Report Type: Report from Study
  Country: US (occurrence: None)
  Receive Date: 20240806
  Receipt Date: 20240806
  Transmission Date: 20241017
  Serious: Yes (Other)
  Sender: ASTRAZENECA
  Company Number: 2021A781831

PATIENT
  Sex: Female

DRUGS (1)
  1. SYMBICORT [Suspect]
     Active Substance: BUDESONIDE\FORMOTEROL FUMARATE DIHYDRATE
     Dosage: 160 ML/KG TWO TIME A DAY.DOSE AS USED -160 ML/KG TWO TIMES A DAY
     Route: 055

REACTIONS (2)
  - Brain injury [Unknown]
  - Product dose omission issue [Unknown]
